FAERS Safety Report 14167221 (Version 1)
Quarter: 2017Q4

REPORT INFORMATION
  Report Type: Spontaneous
  Country: US (occurrence: US)
  Receive Date: 20171107
  Receipt Date: 20171107
  Transmission Date: 20180321
  Serious: Yes (Other)
  Sender: FDA-Public Use
  Company Number: US-GEHC-2017CSU003567

PATIENT
  Sex: Female

DRUGS (4)
  1. OMNISCAN [Suspect]
     Active Substance: GADODIAMIDE
     Indication: PRODUCT USED FOR UNKNOWN INDICATION
     Dosage: UNK UNK, SINGLE
     Route: 065
  2. MAGNEVIST [Suspect]
     Active Substance: GADOPENTETATE DIMEGLUMINE
     Indication: PRODUCT USED FOR UNKNOWN INDICATION
     Route: 065
  3. MULTIHANCE [Suspect]
     Active Substance: GADOBENATE DIMEGLUMINE
     Indication: PRODUCT USED FOR UNKNOWN INDICATION
     Route: 065
  4. GADAVIST [Suspect]
     Active Substance: GADOBUTROL
     Indication: PRODUCT USED FOR UNKNOWN INDICATION
     Route: 065

REACTIONS (15)
  - Emotional distress [Not Recovered/Not Resolved]
  - Deafness [Unknown]
  - Immobile [Unknown]
  - Gadolinium deposition disease [Unknown]
  - Anxiety [Not Recovered/Not Resolved]
  - Joint stiffness [Unknown]
  - Gait disturbance [Unknown]
  - Skin disorder [Unknown]
  - Visual impairment [Unknown]
  - Arthralgia [Unknown]
  - Burning sensation [Unknown]
  - Heart rate increased [Unknown]
  - Alopecia [Unknown]
  - Asthenia [Unknown]
  - Pain [Unknown]
